FAERS Safety Report 7907304-6 (Version None)
Quarter: 2011Q4

REPORT INFORMATION
  Report Type: 
  Country: None (occurrence: None)
  Receive Date: 20111109
  Receipt Date: 20111026
  Transmission Date: 20120403
  Serious: Yes (Hospitalization)
  Sender: FDA-Public Use
  Company Number: 2011S1001492

PATIENT
  Age: 73 Year
  Sex: Male

DRUGS (6)
  1. BASEN [Concomitant]
  2. LIVALO [Suspect]
     Indication: HYPERLIPIDAEMIA
     Dosage: 1 MG;1X;PO ; 4 MG;1X;PO
     Route: 048
     Dates: end: 20110731
  3. LIVALO [Suspect]
     Indication: HYPERLIPIDAEMIA
     Dosage: 1 MG;1X;PO ; 4 MG;1X;PO
     Route: 048
     Dates: start: 20110801
  4. MICARDIS [Concomitant]
  5. CARVEDILOL [Concomitant]
  6. OMEPRAZOLE [Concomitant]

REACTIONS (1)
  - RHABDOMYOLYSIS [None]
